FAERS Safety Report 4460002-6 (Version None)
Quarter: 2004Q3

REPORT INFORMATION
  Report Type: 
  Country: None (occurrence: None)
  Receive Date: 20040928
  Receipt Date: 20030919
  Transmission Date: 20050211
  Serious: No
  Sender: FDA-Public Use
  Company Number: US-GLAXOSMITHKLINE-A0427240A

PATIENT
  Age: 61 Year
  Sex: Male

DRUGS (8)
  1. SEREVENT [Suspect]
     Dosage: 1PUFF TWICE PER DAY
     Route: 055
     Dates: start: 20030701
  2. ADVAIR DISKUS 100/50 [Suspect]
     Indication: ILL-DEFINED DISORDER
     Route: 055
     Dates: start: 20030701
  3. GUAIFENESIN [Concomitant]
     Route: 065
  4. PULMICORT [Concomitant]
     Route: 065
  5. ALBUTEROL [Concomitant]
     Route: 055
  6. FORADIL [Concomitant]
     Route: 065
  7. ATROVENT [Concomitant]
     Route: 065
  8. OXYGEN [Concomitant]
     Route: 065

REACTIONS (2)
  - LOCALISED OEDEMA [None]
  - MUCOUS MEMBRANE DISORDER [None]
